FAERS Safety Report 16643961 (Version 1)
Quarter: 2019Q3

REPORT INFORMATION
  Report Type: Spontaneous
  Country: US (occurrence: US)
  Receive Date: 20190729
  Receipt Date: 20190729
  Transmission Date: 20191004
  Serious: No
  Sender: FDA-Public Use
  Company Number: US-JNJFOC-20190729381

PATIENT
  Sex: Male

DRUGS (7)
  1. TENEX [Suspect]
     Active Substance: GUANFACINE HYDROCHLORIDE
     Indication: SLEEP DISORDER
  2. RISPERDAL M-TAB [Suspect]
     Active Substance: RISPERIDONE
     Indication: BEHAVIOUR DISORDER
  3. RISPERDAL [Suspect]
     Active Substance: RISPERIDONE
     Indication: AUTISM SPECTRUM DISORDER
     Route: 048
  4. RISPERDAL M-TAB [Suspect]
     Active Substance: RISPERIDONE
     Indication: AUTISM SPECTRUM DISORDER
     Route: 048
  5. TENEX [Suspect]
     Active Substance: GUANFACINE HYDROCHLORIDE
     Indication: BEHAVIOUR DISORDER
     Route: 048
  6. TENEX [Suspect]
     Active Substance: GUANFACINE HYDROCHLORIDE
     Indication: TIC
  7. RISPERDAL [Suspect]
     Active Substance: RISPERIDONE
     Indication: BEHAVIOUR DISORDER

REACTIONS (2)
  - Rash [Not Recovered/Not Resolved]
  - Breast enlargement [Not Recovered/Not Resolved]
